FAERS Safety Report 20609031 (Version 6)
Quarter: 2022Q2

REPORT INFORMATION
  Report Type: Report from Study
  Country: CA (occurrence: CA)
  Receive Date: 20220317
  Receipt Date: 20220617
  Transmission Date: 20220720
  Serious: Yes (Hospitalization, Other)
  Sender: FDA-Public Use
  Company Number: CA-TAKEDA-CA202009996

PATIENT
  Age: 72 Year
  Sex: Male

DRUGS (11)
  1. HUMAN IMMUNOGLOBULIN G [Suspect]
     Active Substance: HUMAN IMMUNOGLOBULIN G
     Indication: Multifocal motor neuropathy
     Dosage: 50 GRAM, 1/WEEK
     Route: 065
  2. HUMAN IMMUNOGLOBULIN G [Suspect]
     Active Substance: HUMAN IMMUNOGLOBULIN G
     Dosage: 30 GRAM, 1/WEEK
     Route: 058
     Dates: start: 20180905
  3. HUMAN IMMUNOGLOBULIN G [Suspect]
     Active Substance: HUMAN IMMUNOGLOBULIN G
     Dosage: 50 GRAM, 1/WEEK
     Route: 058
     Dates: start: 20180905
  4. HUMAN IMMUNOGLOBULIN G [Suspect]
     Active Substance: HUMAN IMMUNOGLOBULIN G
     Dosage: 50 GRAM 1/WEEK
     Route: 065
     Dates: start: 20180905
  5. HUMAN IMMUNOGLOBULIN G [Suspect]
     Active Substance: HUMAN IMMUNOGLOBULIN G
     Dosage: 50 GRAM 1/WEEK
     Route: 065
     Dates: start: 20180905
  6. HUMAN IMMUNOGLOBULIN G [Suspect]
     Active Substance: HUMAN IMMUNOGLOBULIN G
     Dosage: 50 GRAM 1/WEEK
     Route: 065
     Dates: start: 20180905
  7. HUMAN IMMUNOGLOBULIN G [Suspect]
     Active Substance: HUMAN IMMUNOGLOBULIN G
     Dosage: 50 GRAM 1/WEEK
     Route: 065
     Dates: start: 20180905
  8. HUMAN IMMUNOGLOBULIN G [Suspect]
     Active Substance: HUMAN IMMUNOGLOBULIN G
     Dosage: 50 GRAM 1/WEEK
     Route: 065
     Dates: start: 20180905
  9. HUMAN IMMUNOGLOBULIN G [Suspect]
     Active Substance: HUMAN IMMUNOGLOBULIN G
     Dosage: 50 GRAM 1/WEEK
     Route: 065
     Dates: start: 20180905
  10. GAMMAGARD [Concomitant]
     Active Substance: HUMAN IMMUNOGLOBULIN G
     Dosage: UNK
     Route: 065
     Dates: start: 20150101, end: 20171231
  11. HIZENTRA [Concomitant]
     Active Substance: HUMAN IMMUNOGLOBULIN G
     Dosage: 5 MILLILITER
     Route: 065
     Dates: start: 20180101, end: 20180902

REACTIONS (25)
  - Dehydration [Unknown]
  - Condition aggravated [Not Recovered/Not Resolved]
  - Viral infection [Not Recovered/Not Resolved]
  - Multifocal motor neuropathy [Not Recovered/Not Resolved]
  - Dermatitis contact [Unknown]
  - Peroneal nerve palsy [Not Recovered/Not Resolved]
  - Infusion site injury [Unknown]
  - Mobility decreased [Unknown]
  - Allergy to chemicals [Unknown]
  - Dry skin [Unknown]
  - Limb discomfort [Unknown]
  - Grip strength decreased [Unknown]
  - Muscular weakness [Not Recovered/Not Resolved]
  - Urticaria [Unknown]
  - Pain [Unknown]
  - Hypoaesthesia [Recovered/Resolved]
  - Joint swelling [Unknown]
  - Muscle swelling [Unknown]
  - Peripheral swelling [Unknown]
  - Off label use [Unknown]
  - Wrong technique in product usage process [Not Recovered/Not Resolved]
  - Needle issue [Recovered/Resolved]
  - Asthma [Not Recovered/Not Resolved]
  - Muscle discomfort [Unknown]
  - Drug ineffective [Recovered/Resolved]

NARRATIVE: CASE EVENT DATE: 20180905
